FAERS Safety Report 14166593 (Version 1)
Quarter: 2017Q4

REPORT INFORMATION
  Report Type: Spontaneous
  Country: US (occurrence: US)
  Receive Date: 20171106
  Receipt Date: 20171106
  Transmission Date: 20180321
  Serious: Yes (Death)
  Sender: FDA-Public Use
  Company Number: None

PATIENT
  Sex: Female
  Weight: 58.5 kg

DRUGS (1)
  1. LIPITOR [Suspect]
     Active Substance: ATORVASTATIN CALCIUM
     Indication: BLOOD CHOLESTEROL INCREASED
     Route: 048
     Dates: start: 20070115, end: 20130814

REACTIONS (5)
  - Blood cholesterol increased [None]
  - Type 2 diabetes mellitus [None]
  - Multiple allergies [None]
  - Amyotrophic lateral sclerosis [None]
  - Pain [None]

NARRATIVE: CASE EVENT DATE: 20130727
